FAERS Safety Report 8866395 (Version 1)
Quarter: 2012Q4

REPORT INFORMATION
  Report Type: Report from Study
  Country: CA (occurrence: CA)
  Receive Date: 20121025
  Receipt Date: 20121025
  Transmission Date: 20130627
  Serious: Yes (Other)
  Sender: FDA-Public Use
  Company Number: CA-JNJFOC-20121013078

PATIENT
  Age: 30 Year
  Sex: Female
  Weight: 57.61 kg

DRUGS (2)
  1. SIMPONI [Suspect]
     Indication: RHEUMATOID ARTHRITIS
     Route: 058
     Dates: start: 20120323
  2. SIMPONI [Suspect]
     Indication: RHEUMATOID ARTHRITIS
     Route: 058
     Dates: start: 20120921

REACTIONS (4)
  - Syncope [Unknown]
  - Hypokinesia [Unknown]
  - Blindness [Unknown]
  - Asthenia [Not Recovered/Not Resolved]
